FAERS Safety Report 14672041 (Version 1)
Quarter: 2018Q1

REPORT INFORMATION
  Report Type: Spontaneous
  Country: FR (occurrence: FR)
  Receive Date: 20180323
  Receipt Date: 20180323
  Transmission Date: 20180509
  Serious: Yes (Other)
  Sender: FDA-Public Use
  Company Number: FR-MERCK KGAA-2044379

PATIENT
  Age: 45 Year
  Sex: Female

DRUGS (1)
  1. NOVOTHYROX [Suspect]
     Active Substance: LEVOTHYROXINE SODIUM
     Indication: PRODUCT USED FOR UNKNOWN INDICATION

REACTIONS (22)
  - Blood triglycerides increased [None]
  - Aspartate aminotransferase increased [None]
  - Vertigo [None]
  - Disturbance in attention [None]
  - Fatigue [None]
  - Decreased interest [None]
  - Social avoidant behaviour [None]
  - Alanine aminotransferase increased [None]
  - Dizziness [None]
  - Asthenia [None]
  - High density lipoprotein decreased [None]
  - Gamma-glutamyltransferase increased [None]
  - Impaired work ability [None]
  - Depression [None]
  - Blood cholesterol increased [None]
  - Loss of personal independence in daily activities [None]
  - Somnolence [None]
  - Poor quality sleep [None]
  - Blood thyroid stimulating hormone increased [None]
  - Presyncope [None]
  - Psychiatric symptom [None]
  - Low density lipoprotein [None]

NARRATIVE: CASE EVENT DATE: 2017
